FAERS Safety Report 23410143 (Version 1)
Quarter: 2024Q1

REPORT INFORMATION
  Report Type: Spontaneous
  Country: FR (occurrence: FR)
  Receive Date: 20240117
  Receipt Date: 20240117
  Transmission Date: 20240410
  Serious: Yes (Other)
  Sender: FDA-Public Use
  Company Number: FR-TEVA-VS-3138501

PATIENT
  Age: 19 Year

DRUGS (5)
  1. METHOTREXATE [Suspect]
     Active Substance: METHOTREXATE
     Indication: Acute biphenotypic leukaemia
     Dosage: 4 CONSOLIDATION COURSES (CUMULATIVE DOSE TO FIRST REACTION : 16 GRAM PER SQUARE METRE)
     Route: 065
  2. PEG/L-ASPARAGINASE [Suspect]
     Active Substance: PEGASPARGASE
     Indication: Acute biphenotypic leukaemia
     Dosage: 4 CONSOLIDATION COURSES, CUMULATIVE DOSE: 4000 IU/M2
     Route: 065
  3. DARATUMUMAB [Concomitant]
     Active Substance: DARATUMUMAB
     Indication: Acute biphenotypic leukaemia
     Dosage: QW (WEEKLY)
     Route: 058
  4. MERCAPTOPURINE [Concomitant]
     Active Substance: MERCAPTOPURINE
     Indication: Acute biphenotypic leukaemia
     Dosage: UNK
     Route: 065
  5. VINCRISTINE [Concomitant]
     Active Substance: VINCRISTINE
     Indication: Acute biphenotypic leukaemia
     Dosage: 4 CONSOLIDATION COURSES
     Route: 065

REACTIONS (4)
  - Cholestasis [Unknown]
  - Drug-induced liver injury [Unknown]
  - Hepatic cytolysis [Unknown]
  - Hepatic steatosis [Unknown]
